FAERS Safety Report 7501858-X (Version None)
Quarter: 2011Q2

REPORT INFORMATION
  Report Type: 
  Country: None (occurrence: None)
  Receive Date: 20110525
  Receipt Date: 20110513
  Transmission Date: 20111010
  Serious: Yes (Other)
  Sender: FDA-Public Use
  Company Number: US-BAYER-2011-020542

PATIENT
  Sex: Female

DRUGS (1)
  1. MIRENA [Suspect]
     Indication: CONTRACEPTION
     Dosage: 20 MCG/24HR, CONT
     Route: 015
     Dates: start: 20101213, end: 20110215

REACTIONS (18)
  - ALOPECIA [None]
  - PAIN [None]
  - ABDOMINAL PAIN [None]
  - AMNESIA [None]
  - HOT FLUSH [None]
  - NIGHT SWEATS [None]
  - FUNGAL INFECTION [None]
  - HEADACHE [None]
  - WEIGHT INCREASED [None]
  - ABDOMINAL TENDERNESS [None]
  - MIGRAINE [None]
  - RASH [None]
  - MYALGIA [None]
  - FATIGUE [None]
  - VAGINAL ODOUR [None]
  - GENITAL HAEMORRHAGE [None]
  - MOOD SWINGS [None]
  - ACNE [None]
